FAERS Safety Report 10394200 (Version 1)
Quarter: 2014Q3

REPORT INFORMATION
  Report Type: Spontaneous
  Country: JP (occurrence: JP)
  Receive Date: 20140819
  Receipt Date: 20140819
  Transmission Date: 20150326
  Serious: No
  Sender: FDA-Public Use
  Company Number: PHHY2014JP101360

PATIENT
  Age: 76 Year
  Sex: Male

DRUGS (2)
  1. NILOTINIB [Suspect]
     Active Substance: NILOTINIB
     Indication: CHRONIC MYELOID LEUKAEMIA
     Dosage: 400 MG, DAILY
     Dates: start: 201107
  2. NILOTINIB [Suspect]
     Active Substance: NILOTINIB
     Dosage: 600 MG, UNK
     Dates: start: 201108

REACTIONS (2)
  - Gastrointestinal disorder [Recovered/Resolved]
  - Rash [Recovered/Resolved]
